FAERS Safety Report 8405104-4 (Version None)
Quarter: 2012Q2

REPORT INFORMATION
  Report Type: 
  Country: None (occurrence: None)
  Receive Date: 20120602
  Receipt Date: 20120529
  Transmission Date: 20120825
  Serious: Yes (Hospitalization)
  Sender: FDA-Public Use
  Company Number: US-BAYER-2012-053909

PATIENT
  Age: 70 Year
  Sex: Female
  Weight: 65.76 kg

DRUGS (9)
  1. PRAMIPEXOLE DIHYDROCHLORIDE [Concomitant]
  2. ESTROGEN [Concomitant]
  3. AMITRIPTYLINE HCL [Concomitant]
  4. ALEVE (CAPLET) [Suspect]
     Indication: BACK PAIN
     Dosage: UNK
     Dates: start: 20120501, end: 20120518
  5. TRIAMTERENE [Concomitant]
  6. CARBIDOPA + LEVODOPA [Concomitant]
  7. SYNTHROID [Concomitant]
  8. PAXIL [Concomitant]
  9. PROVERA [Concomitant]

REACTIONS (4)
  - DYSPNOEA [None]
  - LOSS OF CONSCIOUSNESS [None]
  - PRURITUS GENERALISED [None]
  - DIZZINESS [None]
